FAERS Safety Report 16233389 (Version 1)
Quarter: 2019Q2

REPORT INFORMATION
  Report Type: Spontaneous
  Country: NO (occurrence: NO)
  Receive Date: 20190424
  Receipt Date: 20190424
  Transmission Date: 20190711
  Serious: Yes (Hospitalization)
  Sender: FDA-Public Use
  Company Number: NO-B. BRAUN MEDICAL INC.-2066162

PATIENT
  Age: 39 Year
  Sex: Male

DRUGS (6)
  1. LIDOCAINE. [Concomitant]
     Active Substance: LIDOCAINE
     Dates: start: 20171019, end: 20171019
  2. THIOPENTAL SODIUM. [Concomitant]
     Active Substance: THIOPENTAL SODIUM
     Dates: start: 20171019, end: 20171019
  3. CEFUROXIME FOR INJECTION USP AND DEXTROSE INJECTION USP [Suspect]
     Active Substance: CEFUROXIME SODIUM
     Indication: PROPHYLAXIS
     Route: 051
     Dates: start: 20171019, end: 20171019
  4. CHLORHEXIDINE [Concomitant]
     Active Substance: CHLORHEXIDINE
     Route: 003
     Dates: start: 20171019, end: 20171019
  5. FENTANYL. [Concomitant]
     Active Substance: FENTANYL
     Route: 051
     Dates: start: 20171019, end: 20171019
  6. CISATRACURIUM. [Concomitant]
     Active Substance: CISATRACURIUM
     Route: 051
     Dates: start: 20171019, end: 20171019

REACTIONS (1)
  - Anaphylactic reaction [Recovered/Resolved]

NARRATIVE: CASE EVENT DATE: 20171019
